FAERS Safety Report 8450267-8 (Version None)
Quarter: 2012Q2

REPORT INFORMATION
  Report Type: 
  Country: None (occurrence: None)
  Receive Date: 20120614
  Receipt Date: 20120614
  Transmission Date: 20120825
  Serious: Yes (Other)
  Sender: FDA-Public Use
  Company Number: None

PATIENT
  Age: 52 Year
  Sex: Female
  Weight: 61.2356 kg

DRUGS (2)
  1. METHOCARBAMOL [Concomitant]
  2. METHOCARBAMOL [Suspect]
     Indication: BACK PAIN
     Dosage: 2 AT NIGHT PO
     Route: 048
     Dates: start: 20120501, end: 20120606

REACTIONS (10)
  - OROPHARYNGEAL PAIN [None]
  - MUSCLE SPASMS [None]
  - HEADACHE [None]
  - INSOMNIA [None]
  - DIARRHOEA HAEMORRHAGIC [None]
  - TREMOR [None]
  - SWOLLEN TONGUE [None]
  - UNEVALUABLE EVENT [None]
  - IRRITABLE BOWEL SYNDROME [None]
  - LYMPHADENOPATHY [None]
